FAERS Safety Report 7592066-5 (Version None)
Quarter: 2011Q2

REPORT INFORMATION
  Report Type: 
  Country: None (occurrence: None)
  Receive Date: 20110628
  Receipt Date: 20110616
  Transmission Date: 20111010
  Serious: Yes (Hospitalization)
  Sender: FDA-Public Use
  Company Number: 2011SP026905

PATIENT
  Age: 5 Year
  Sex: Male

DRUGS (2)
  1. TEMODAL [Suspect]
     Indication: NEOPLASM
     Dosage: 100 MG, QD, PO
     Route: 048
     Dates: start: 20110414, end: 20110418
  2. TOPOTECAN [Suspect]
     Indication: NEOPLASM
     Dosage: 0.5 MG, QD, IV
     Route: 042
     Dates: start: 20110414, end: 20110418

REACTIONS (1)
  - FEBRILE NEUTROPENIA [None]
